FAERS Safety Report 5130596-6 (Version None)
Quarter: 2006Q4

REPORT INFORMATION
  Report Type: 
  Country: None (occurrence: None)
  Receive Date: 20061013
  Receipt Date: 20061002
  Transmission Date: 20070319
  Serious: Yes (Hospitalization, Other)
  Sender: FDA-Public Use
  Company Number: US200608003613

PATIENT
  Sex: Female

DRUGS (3)
  1. ZYPREXA [Suspect]
  2. ZYPREXA ZYDIS [Suspect]
  3. ANTIPSYCHOTICS [Concomitant]

REACTIONS (2)
  - INTUBATION [None]
  - PNEUMONIA [None]
